FAERS Safety Report 5259047-8 (Version None)
Quarter: 2007Q1

REPORT INFORMATION
  Report Type: 
  Country: None (occurrence: None)
  Receive Date: 20070308
  Receipt Date: 20070226
  Transmission Date: 20070707
  Serious: Yes (Other)
  Sender: FDA-Public Use
  Company Number: CA-PFIZER INC-2007016050

PATIENT
  Age: 43 Year
  Sex: Male
  Weight: 92.1 kg

DRUGS (8)
  1. LYRICA [Suspect]
     Indication: NEURALGIA
     Route: 048
  2. TRANDATE [Concomitant]
  3. VASOTEC [Concomitant]
     Dates: end: 20060601
  4. PLAVIX [Concomitant]
     Dates: start: 20060601
  5. METOPROLOL SUCCINATE [Concomitant]
     Dates: start: 20060601
  6. FUROSEMIDE [Concomitant]
     Dates: start: 20060601
  7. ENALAPRIL MALEATE [Concomitant]
     Dates: start: 20060601
  8. SIMVASTATIN [Concomitant]
     Dates: start: 20060601

REACTIONS (3)
  - DIABETES MELLITUS [None]
  - MYOCARDIAL INFARCTION [None]
  - PAINFUL ERECTION [None]
